FAERS Safety Report 5981749-6 (Version None)
Quarter: 2008Q4

REPORT INFORMATION
  Report Type: 
  Country: None (occurrence: None)
  Receive Date: 20081202
  Receipt Date: 20081121
  Transmission Date: 20090506
  Serious: Yes (Death)
  Sender: FDA-Public Use
  Company Number: 2008US003058

PATIENT
  Age: 58 Year
  Sex: Female

DRUGS (37)
  1. PROGRAF [Suspect]
     Indication: LUNG TRANSPLANT
     Dosage: 2 MG, BID, ORAL 1.5 MG, BID, ORAL 2.5 MG, BID, ORAL 1 MG, BID, ORAL
     Route: 048
     Dates: start: 20041129, end: 20041207
  2. PROGRAF [Suspect]
     Indication: LUNG TRANSPLANT
     Dosage: 2 MG, BID, ORAL 1.5 MG, BID, ORAL 2.5 MG, BID, ORAL 1 MG, BID, ORAL
     Route: 048
     Dates: start: 20041207, end: 20041214
  3. PROGRAF [Suspect]
     Indication: LUNG TRANSPLANT
     Dosage: 2 MG, BID, ORAL 1.5 MG, BID, ORAL 2.5 MG, BID, ORAL 1 MG, BID, ORAL
     Route: 048
     Dates: start: 20041214, end: 20041229
  4. PROGRAF [Suspect]
     Indication: LUNG TRANSPLANT
     Dosage: 2 MG, BID, ORAL 1.5 MG, BID, ORAL 2.5 MG, BID, ORAL 1 MG, BID, ORAL
     Route: 048
     Dates: start: 20041229, end: 20050104
  5. PROGRAF [Suspect]
     Indication: LUNG TRANSPLANT
     Dosage: 2 MG, BID, ORAL 1.5 MG, BID, ORAL 2.5 MG, BID, ORAL 1 MG, BID, ORAL
     Route: 048
     Dates: start: 20050104, end: 20050119
  6. PROGRAF [Suspect]
     Indication: LUNG TRANSPLANT
     Dosage: 2 MG, BID, ORAL 1.5 MG, BID, ORAL 2.5 MG, BID, ORAL 1 MG, BID, ORAL
     Route: 048
     Dates: start: 20050119, end: 20050419
  7. PROGRAF [Suspect]
     Indication: LUNG TRANSPLANT
     Dosage: 2 MG, BID, ORAL 1.5 MG, BID, ORAL 2.5 MG, BID, ORAL 1 MG, BID, ORAL
     Route: 048
     Dates: start: 20050419, end: 20060124
  8. PROGRAF [Suspect]
     Indication: LUNG TRANSPLANT
     Dosage: 2 MG, BID, ORAL 1.5 MG, BID, ORAL 2.5 MG, BID, ORAL 1 MG, BID, ORAL
     Route: 048
     Dates: start: 20060124, end: 20060505
  9. PROGRAF [Suspect]
     Indication: LUNG TRANSPLANT
     Dosage: 2 MG, BID, ORAL 1.5 MG, BID, ORAL 2.5 MG, BID, ORAL 1 MG, BID, ORAL
     Route: 048
     Dates: start: 20060505
  10. COMBIVENT [Concomitant]
  11. ADVAIR (FLUTICASONE PROPIONATE, SALEMETEROL XINAFOATE) [Concomitant]
  12. MONTELUKAST SODIUM [Concomitant]
  13. BENZONATATE [Concomitant]
  14. GUAIFENESIN [Concomitant]
  15. OMEPRAZOLE [Concomitant]
  16. AMITRIPTYLINE HCL [Concomitant]
  17. IBUPROFEN TABLETS [Concomitant]
  18. ASPIRIN [Concomitant]
  19. ATORVASTATIN [Concomitant]
  20. AMIODARONE HCL [Concomitant]
  21. XANAX [Concomitant]
  22. PREDNISONE TAB [Concomitant]
  23. IMURAN [Concomitant]
  24. DAPSONE [Concomitant]
  25. MYCOSTATIN [Concomitant]
  26. LANSOPRAZOLE [Concomitant]
  27. VALTREX [Concomitant]
  28. MULTIVITAMIN [Concomitant]
  29. CALCIUM [Concomitant]
  30. MAGNESIUM OXIDE [Concomitant]
  31. FUROSEMIDE [Concomitant]
  32. POTASSIUM CHLORIDE [Concomitant]
  33. ALENDRONATE SODIUM [Concomitant]
  34. MYCOPHENOLATE MOFETIL [Concomitant]
  35. CLONAZEPAM [Concomitant]
  36. FLUTICASONE PROPIONATE [Concomitant]
  37. CYCLOBENZAPRINE HCL [Concomitant]

REACTIONS (1)
  - CEREBROVASCULAR ACCIDENT [None]
